FAERS Safety Report 4953878-7 (Version None)
Quarter: 2006Q1

REPORT INFORMATION
  Report Type: 
  Country: None (occurrence: None)
  Receive Date: 20060324
  Receipt Date: 20060324
  Transmission Date: 20060701
  Serious: Yes (Hospitalization)
  Sender: FDA-Public Use
  Company Number: None

PATIENT
  Age: 63 Year
  Sex: Female

DRUGS (6)
  1. LYRICA [Suspect]
     Dosage: 1 TAB TID PO
     Route: 048
     Dates: start: 20060217, end: 20060219
  2. REQUIP [Suspect]
     Dosage: 1 TAB BEDTIME PO
     Route: 048
     Dates: start: 20060217, end: 20060219
  3. GLUCOVANCE [Concomitant]
  4. DIOVAN [Concomitant]
  5. LASIX [Concomitant]
  6. TUSSIONEX [Concomitant]

REACTIONS (1)
  - CONFUSIONAL STATE [None]
